FAERS Safety Report 5945424-6 (Version None)
Quarter: 2008Q4

REPORT INFORMATION
  Report Type: 
  Country: None (occurrence: None)
  Receive Date: 20081107
  Receipt Date: 20081027
  Transmission Date: 20090506
  Serious: Yes (Death, Hospitalization, Other)
  Sender: FDA-Public Use
  Company Number: US-PFIZER INC-2008081790

PATIENT
  Sex: Male
  Weight: 95.3 kg

DRUGS (10)
  1. CHANTIX [Suspect]
     Indication: SMOKING CESSATION THERAPY
     Dates: start: 20080620, end: 20080626
  2. LOPID [Concomitant]
  3. ZOCOR [Concomitant]
  4. GLUCOVANCE [Concomitant]
  5. ACTOS [Concomitant]
  6. HYDROCHLOROTHIAZIDE [Concomitant]
  7. PRINIVIL [Concomitant]
  8. ATENOLOL [Concomitant]
  9. BUDESONIDE [Concomitant]
     Route: 055
  10. VENTOLIN [Concomitant]
     Route: 055

REACTIONS (15)
  - ABNORMAL BEHAVIOUR [None]
  - ADVERSE REACTION [None]
  - ARTERIOSCLEROSIS [None]
  - BENIGN PROSTATIC HYPERPLASIA [None]
  - CATATONIA [None]
  - CONVULSION [None]
  - DILATATION VENTRICULAR [None]
  - FIBROSIS [None]
  - INTERCAPILLARY GLOMERULOSCLEROSIS [None]
  - LEFT VENTRICULAR HYPERTROPHY [None]
  - METASTATIC SQUAMOUS CELL CARCINOMA [None]
  - NEUROLOGICAL SYMPTOM [None]
  - ONYCHOMYCOSIS [None]
  - PNEUMONIA [None]
  - STATUS EPILEPTICUS [None]
